FAERS Safety Report 8101080-2 (Version None)
Quarter: 2012Q1

REPORT INFORMATION
  Report Type: 
  Country: None (occurrence: None)
  Receive Date: 20120129
  Receipt Date: 20110908
  Transmission Date: 20120608
  Serious: No
  Sender: FDA-Public Use
  Company Number: US-ABBOTT-11P-163-0852581-00

PATIENT
  Age: 40 Year
  Sex: Female

DRUGS (1)
  1. HUMIRA [Suspect]
     Indication: PSORIASIS
     Dosage: INTERRUPTED
     Dates: start: 20110101

REACTIONS (4)
  - URTICARIA [None]
  - JOINT SWELLING [None]
  - LUPUS-LIKE SYNDROME [None]
  - ARTHRALGIA [None]
